FAERS Safety Report 26130277 (Version 1)
Quarter: 2025Q4

REPORT INFORMATION
  Report Type: Spontaneous
  Country: AR (occurrence: AR)
  Receive Date: 20251208
  Receipt Date: 20251208
  Transmission Date: 20260117
  Serious: Yes (Hospitalization)
  Sender: MYLAN
  Company Number: AR-MYLANLABS-2025M1103430

PATIENT
  Age: 54 Year
  Sex: Male

DRUGS (2)
  1. CLOZAPINE [Suspect]
     Active Substance: CLOZAPINE
     Indication: Product used for unknown indication
     Dosage: UNK
  2. CLOTHIAPINE [Concomitant]
     Active Substance: CLOTHIAPINE
     Dosage: UNK

REACTIONS (4)
  - Behaviour disorder [Unknown]
  - Eating disorder [Unknown]
  - Somnolence [Unknown]
  - Fall [Unknown]

NARRATIVE: CASE EVENT DATE: 20250901
